FAERS Safety Report 7650760-1 (Version None)
Quarter: 2011Q3

REPORT INFORMATION
  Report Type: 
  Country: None (occurrence: None)
  Receive Date: 20110802
  Receipt Date: 20110728
  Transmission Date: 20111222
  Serious: Yes (Hospitalization)
  Sender: FDA-Public Use
  Company Number: US-PFIZER INC-2011172718

PATIENT
  Sex: Female
  Weight: 86.168 kg

DRUGS (5)
  1. CLONAZEPAM [Concomitant]
     Dosage: 2 MG, 2X/DAY
  2. ADDERALL 10 [Concomitant]
     Indication: ATTENTION DEFICIT/HYPERACTIVITY DISORDER
     Dosage: 30 MG, 2X/DAY
  3. LISINOPRIL [Concomitant]
     Indication: HYPERTENSION
     Dosage: 20 MG, DAILY
  4. ZOLPIDEM [Concomitant]
     Dosage: 10 MG, DAILY
     Route: 048
  5. EFFEXOR XR [Suspect]
     Indication: DEPRESSION
     Dosage: 300 MG, DAILY
     Route: 048
     Dates: start: 20020101

REACTIONS (14)
  - NERVOUSNESS [None]
  - NAUSEA [None]
  - IRRITABILITY [None]
  - VISUAL IMPAIRMENT [None]
  - PANIC REACTION [None]
  - HEADACHE [None]
  - DEPRESSED MOOD [None]
  - MOBILITY DECREASED [None]
  - LAZINESS [None]
  - EMOTIONAL DISORDER [None]
  - DIZZINESS [None]
  - INSOMNIA [None]
  - SOMNOLENCE [None]
  - DIARRHOEA [None]
